FAERS Safety Report 8450307 (Version 2)
Quarter: 2013Q2

REPORT INFORMATION
  Report Type: Spontaneous
  Country: US (occurrence: None)
  Receive Date: 20120229
  Receipt Date: 20120523
  Transmission Date: 20140414
  Serious: Yes (Hospitalization)
  Sender: FDA-Public Use
  Company Number: 010612

PATIENT
  Sex: Male

DRUGS (13)
  1. SAMSCA [Suspect]
     Indication: HYPONATRAEMIA
     Dosage: ORAL
     Route: 048
  2. CLOBETASOL (CLOBETASOL) [Concomitant]
  3. FUROSEMIDE (FUROSEMIDE) [Concomitant]
  4. NADOLOL [Concomitant]
  5. OMEPRAZOLE [Concomitant]
  6. SPIRONOLACTONE [Concomitant]
  7. MULTIVITAMIN /00097801/ (ASCORBIC ACID, CALCIUM PANTOTHENATE, ERGOCALCIFEROL, NICOTINAMIDE, PYRIDOXI [Concomitant]
  8. PHOS-NAK (POTASSIUM PHOSPHATE DIBASIC, POTASSIUM PHOSPHATE MONOBASIC, SODIUM PHOSPHATE DIBASIC, SODI [Concomitant]
  9. THIAMINE HCL (THIAMIDE HYDROCHLORIDE) [Concomitant]
  10. CAMPHOR (CAMPHOR) [Concomitant]
  11. CLINDAMYCIN HCL (CLINDAMYCIN HYDROCHLORIDE) [Concomitant]
  12. SULFAMETHOXAZOLE AND TRIMETHOPRIM [Concomitant]
  13. OXYCODONE (OXYCODONE) [Concomitant]

REACTIONS (1)
  - PYREXIA [None]
